FAERS Safety Report 21680525 (Version 1)
Quarter: 2022Q4

REPORT INFORMATION
  Report Type: Spontaneous
  Country: US (occurrence: US)
  Receive Date: 20221205
  Receipt Date: 20221205
  Transmission Date: 20230113
  Serious: No
  Sender: FDA-Public Use
  Company Number: US-GSKCCFUS-Case-01567645_AE-88604

PATIENT
  Sex: Female

DRUGS (3)
  1. FLOVENT [Suspect]
     Active Substance: FLUTICASONE PROPIONATE
     Indication: Product used for unknown indication
     Dosage: UNK, 44 MCG
  2. FLOVENT [Suspect]
     Active Substance: FLUTICASONE PROPIONATE
     Indication: Product used for unknown indication
     Dosage: UNK
  3. FLOVENT [Suspect]
     Active Substance: FLUTICASONE PROPIONATE

REACTIONS (3)
  - Device use error [Unknown]
  - Expired product administered [Unknown]
  - Product dose omission issue [Unknown]
